FAERS Safety Report 14202802 (Version 2)
Quarter: 2017Q4

REPORT INFORMATION
  Report Type: Spontaneous
  Country: KR (occurrence: KR)
  Receive Date: 20171119
  Receipt Date: 20171130
  Transmission Date: 20180321
  Serious: Yes (Hospitalization)
  Sender: FDA-Public Use
  Company Number: KR-CONCORDIA PHARMACEUTICALS INC.-GSH201711-006399

PATIENT
  Age: 81 Year
  Sex: Female

DRUGS (3)
  1. HYDROXYCHLOROQUINE [Suspect]
     Active Substance: HYDROXYCHLOROQUINE
     Indication: RHEUMATOID ARTHRITIS
     Route: 065
  2. PREDNISOLONE. [Suspect]
     Active Substance: PREDNISOLONE
     Indication: RHEUMATOID ARTHRITIS
     Route: 065
  3. METHOTREXATE. [Suspect]
     Active Substance: METHOTREXATE
     Indication: RHEUMATOID ARTHRITIS
     Route: 065

REACTIONS (11)
  - Rales [Recovering/Resolving]
  - Pulmonary mass [Recovering/Resolving]
  - Depressed level of consciousness [Recovering/Resolving]
  - Cryptococcosis [Recovering/Resolving]
  - Cryptococcus test positive [Recovering/Resolving]
  - Headache [Recovering/Resolving]
  - Encephalitis [Recovering/Resolving]
  - Ascites [Recovering/Resolving]
  - Pulmonary tuberculosis [Recovering/Resolving]
  - Pyrexia [Recovering/Resolving]
  - Peritonitis [Recovering/Resolving]
